FAERS Safety Report 5193061-6 (Version None)
Quarter: 2006Q4

REPORT INFORMATION
  Report Type: 
  Country: None (occurrence: None)
  Receive Date: 20061228
  Receipt Date: 20060329
  Transmission Date: 20070319
  Serious: No
  Sender: FDA-Public Use
  Company Number: US-GLAXOSMITHKLINE-A0599547A

PATIENT
  Age: 69 Year
  Sex: Male

DRUGS (6)
  1. AVODART [Suspect]
     Indication: BENIGN PROSTATIC HYPERPLASIA
     Dosage: 1CAP PER DAY
     Route: 048
  2. LIPITOR [Concomitant]
  3. ATENOLOL [Concomitant]
  4. DOXAZOSIN MESYLATE [Concomitant]
  5. ADVAIR DISKUS 100/50 [Concomitant]
  6. PREVACID [Concomitant]

REACTIONS (1)
  - DRUG INEFFECTIVE [None]
